FAERS Safety Report 7580454-2 (Version None)
Quarter: 2011Q2

REPORT INFORMATION
  Report Type: 
  Country: None (occurrence: None)
  Receive Date: 20110629
  Receipt Date: 20110125
  Transmission Date: 20111010
  Serious: Yes (Other)
  Sender: FDA-Public Use
  Company Number: A0910432A

PATIENT
  Age: 45 Year
  Sex: Male

DRUGS (1)
  1. ROSIGLITAZONE MALEATE [Suspect]
     Indication: DIABETES MELLITUS
     Route: 048

REACTIONS (8)
  - CEREBROVASCULAR ACCIDENT [None]
  - VISUAL ACUITY REDUCED [None]
  - CHOLECYSTECTOMY [None]
  - HEMIPARESIS [None]
  - NERVE INJURY [None]
  - SURGERY [None]
  - RENAL DISORDER [None]
  - CORONARY ARTERY BYPASS [None]
